FAERS Safety Report 9674967 (Version 2)
Quarter: 2015Q4

REPORT INFORMATION
  Report Type: Report from Study
  Country: US (occurrence: US)
  Receive Date: 20131107
  Receipt Date: 20151229
  Transmission Date: 20160305
  Serious: Yes (Other)
  Sender: FDA-Public Use
  Company Number: US-ASTELLAS-2013US011603

PATIENT
  Age: 59 Year
  Sex: Female

DRUGS (7)
  1. FOLFIRI [Concomitant]
     Active Substance: FLUOROURACIL\IRINOTECAN\LEUCOVORIN
     Indication: PRODUCT USED FOR UNKNOWN INDICATION
     Dosage: UNK UNK, UNKNOWN FREQ.
     Route: 065
  2. ACIPHEX [Concomitant]
     Active Substance: RABEPRAZOLE SODIUM
     Indication: GASTROOESOPHAGEAL REFLUX DISEASE
     Dosage: UNK, UNKNOWN FREQ.
     Route: 065
     Dates: end: 20131022
  3. LEVAQUIN [Concomitant]
     Active Substance: LEVOFLOXACIN
     Indication: LEUKOPENIA
     Route: 048
     Dates: start: 20111004
  4. URCINOL [Concomitant]
     Indication: PRODUCT USED FOR UNKNOWN INDICATION
     Dosage: UNK, UNKNOWN FREQ.
     Route: 065
  5. ERLOTINIB [Suspect]
     Active Substance: ERLOTINIB
     Indication: BILE DUCT CANCER
     Route: 048
     Dates: start: 20131024, end: 20131027
  6. FLONASE [Concomitant]
     Active Substance: FLUTICASONE PROPIONATE
     Indication: HYPERSENSITIVITY
     Dosage: UNK UNK, ONCE DAILY
     Route: 065
     Dates: start: 2012
  7. MIRALAX [Concomitant]
     Active Substance: POLYETHYLENE GLYCOL 3350
     Indication: CONSTIPATION
     Route: 048
     Dates: start: 2011

REACTIONS (13)
  - Malignant neoplasm progression [Unknown]
  - White blood cell count decreased [Unknown]
  - Dyspepsia [Unknown]
  - Rash [Unknown]
  - Dyspepsia [Not Recovered/Not Resolved]
  - Vomiting [Unknown]
  - Blood bilirubin increased [Unknown]
  - Nausea [Unknown]
  - Fatigue [Unknown]
  - Treatment failure [Unknown]
  - Off label use [Unknown]
  - Dry skin [Unknown]
  - Vomiting [Not Recovered/Not Resolved]

NARRATIVE: CASE EVENT DATE: 20131027
